FAERS Safety Report 4777449-0 (Version None)
Quarter: 2005Q3

REPORT INFORMATION
  Report Type: 
  Country: None (occurrence: None)
  Receive Date: 20050915
  Receipt Date: 20050902
  Transmission Date: 20060218
  Serious: Yes (Hospitalization)
  Sender: FDA-Public Use
  Company Number: SUS1-2005-00658

PATIENT
  Age: 35 Year
  Sex: Male

DRUGS (3)
  1. ADDERALL 15 [Suspect]
     Indication: ATTENTION DEFICIT/HYPERACTIVITY DISORDER
  2. PROVIGIL [Suspect]
     Indication: ATTENTION DEFICIT/HYPERACTIVITY DISORDER
     Dosage: 200 MG AT 8AM AND AT NOON, ORAL
     Route: 048
     Dates: start: 20040708, end: 20040827
  3. DEXAMFETAMINE SULFATE (DEXAMFETAMINE SULFATE) [Concomitant]

REACTIONS (19)
  - ABNORMAL BEHAVIOUR [None]
  - ABNORMAL DREAMS [None]
  - ACCIDENTAL OVERDOSE [None]
  - ACUTE PSYCHOSIS [None]
  - AGGRESSION [None]
  - AGITATION [None]
  - ANXIETY [None]
  - BLOOD CREATINE PHOSPHOKINASE INCREASED [None]
  - DELUSION [None]
  - DRUG ABUSER [None]
  - GALLBLADDER DISORDER [None]
  - HALLUCINATION, VISUAL [None]
  - HYPERTENSION [None]
  - INAPPROPRIATE AFFECT [None]
  - MYDRIASIS [None]
  - PARANOIA [None]
  - PYREXIA [None]
  - RHABDOMYOLYSIS [None]
  - TACHYCARDIA [None]
